FAERS Safety Report 9359798 (Version 1)
Quarter: 2013Q2

REPORT INFORMATION
  Report Type: Spontaneous
  Country: DK (occurrence: DK)
  Receive Date: 20130621
  Receipt Date: 20130621
  Transmission Date: 20140414
  Serious: Yes (Other)
  Sender: FDA-Public Use
  Company Number: DK-AMGEN-DNKSP2013041225

PATIENT
  Age: 58 Year
  Sex: Female

DRUGS (3)
  1. PROLIA [Suspect]
     Indication: OSTEOPOROSIS
     Dosage: 60 MG/ML, UNK
     Dates: start: 20110301, end: 201209
  2. ALENDRONATE [Suspect]
     Indication: OSTEOPOROSIS
     Dosage: 70 MG, UNK
     Dates: start: 20100401, end: 201209
  3. PULMICORT TURBUHALER [Concomitant]
     Indication: ASTHMA
     Dosage: UNK
     Dates: start: 2003

REACTIONS (1)
  - Osteonecrosis of jaw [Recovered/Resolved]
